FAERS Safety Report 4280665-8 (Version None)
Quarter: 2004Q1

REPORT INFORMATION
  Report Type: 
  Country: None (occurrence: None)
  Receive Date: 20040127
  Receipt Date: 20040112
  Transmission Date: 20041129
  Serious: Yes (Hospitalization, Disabling)
  Sender: FDA-Public Use
  Company Number: 2003CG01782

PATIENT
  Age: 48 Year
  Sex: Female
  Weight: 58 kg

DRUGS (12)
  1. MARCAINE [Suspect]
     Indication: LOCAL ANAESTHESIA
     Dosage: 10 MG ONCE IT
     Route: 038
     Dates: start: 20031117, end: 20031117
  2. NAROPIN [Suspect]
     Indication: LOCAL ANAESTHESIA
     Dosage: 2 ML ONCE ED
     Route: 008
     Dates: start: 20031117, end: 20031117
  3. NAROPIN [Suspect]
     Indication: POSTOPERATIVE ANALGESIA
     Dosage: 2 ML ONCE ED
     Route: 008
     Dates: start: 20031117, end: 20031117
  4. NAROPIN [Suspect]
     Indication: LOCAL ANAESTHESIA
     Dosage: 6 TO 12 ML/H
     Dates: start: 20031117, end: 20031119
  5. NAROPIN [Suspect]
     Indication: POSTOPERATIVE ANALGESIA
     Dosage: 6 TO 12 ML/H
     Dates: start: 20031117, end: 20031119
  6. MIDAZOLAM HYDROCHLORIDE [Suspect]
     Dosage: 2 MG DAILY IV
     Route: 042
     Dates: start: 20031117, end: 20031117
  7. SUFENTA [Suspect]
     Indication: LOCAL ANAESTHESIA
     Dosage: 3 UG ONCE IT
     Route: 038
     Dates: start: 20031117, end: 20031117
  8. SUFENTA [Suspect]
     Indication: POSTOPERATIVE ANALGESIA
     Dosage: 3 UG ONCE IT
     Route: 038
     Dates: start: 20031117, end: 20031117
  9. SUFENTA [Suspect]
     Indication: LOCAL ANAESTHESIA
     Dosage: 15 UG ONCE
     Dates: start: 20031117, end: 20031118
  10. SUFENTA [Suspect]
     Indication: POSTOPERATIVE ANALGESIA
     Dosage: 15 UG ONCE
     Dates: start: 20031117, end: 20031118
  11. LUTENYL [Concomitant]
  12. ROHYPNOL [Concomitant]

REACTIONS (4)
  - CAUDA EQUINA SYNDROME [None]
  - DRUG TOXICITY [None]
  - FAECAL INCONTINENCE [None]
  - URINARY INCONTINENCE [None]
